FAERS Safety Report 9196371 (Version 1)
Quarter: 2013Q1

REPORT INFORMATION
  Report Type: Spontaneous
  Country: US (occurrence: None)
  Receive Date: 20130326
  Receipt Date: 20130326
  Transmission Date: 20140127
  Serious: Yes (Death, Other)
  Sender: FDA-Public Use
  Company Number: 2013P1002647

PATIENT
  Age: 70 Year
  Sex: Male

DRUGS (13)
  1. FENTANYL CITRATE [Suspect]
     Indication: ANALGESIC THERAPY
     Dosage: 50 MCG; QH; IV?02/10/2013  -  02/17/2013?
     Route: 042
     Dates: start: 20130210, end: 20130217
  2. MIDAZOLAM [Suspect]
     Indication: SEDATION
     Dosage: ; IV?02/07/2013  -  02/17/2013
     Route: 042
     Dates: start: 20130207, end: 20130217
  3. APAP [Concomitant]
  4. ASCORBIC ACID [Concomitant]
  5. CEFAZOLIN [Concomitant]
  6. CHLORHEXIDINE [Concomitant]
  7. CLONIDINE [Concomitant]
  8. FAMOTIDINE [Concomitant]
  9. INSULIN ASPART SLIDING SCALE [Concomitant]
  10. METOPROLOL [Concomitant]
  11. MVI [Concomitant]
  12. NIFEDIPINE [Concomitant]
  13. PHENYTOIN [Concomitant]

REACTIONS (6)
  - Pyrexia [None]
  - Product contamination [None]
  - Pneumonia [None]
  - General physical health deterioration [None]
  - Bradycardia [None]
  - Pulseless electrical activity [None]
